FAERS Safety Report 6690016-7 (Version None)
Quarter: 2010Q2

REPORT INFORMATION
  Report Type: 
  Country: None (occurrence: None)
  Receive Date: 20100421
  Receipt Date: 20100411
  Transmission Date: 20101027
  Serious: Yes (Other)
  Sender: FDA-Public Use
  Company Number: PHHY2010CO22696

PATIENT
  Age: 50 Year
  Sex: Male

DRUGS (1)
  1. RASILEZ [Suspect]
     Indication: HYPERTENSION
     Dosage: 1 TABLET (150 MG PER DAY)
     Route: 048
     Dates: start: 20090101

REACTIONS (1)
  - TYPE 2 DIABETES MELLITUS [None]
